FAERS Safety Report 12744018 (Version 2)
Quarter: 2017Q2

REPORT INFORMATION
  Report Type: Spontaneous
  Country: US (occurrence: US)
  Receive Date: 20160914
  Receipt Date: 20170421
  Transmission Date: 20170830
  Serious: Yes (Hospitalization)
  Sender: FDA-Public Use
  Company Number: US-ASTRAZENECA-2016SE94860

PATIENT
  Age: 74 Year
  Sex: Female
  Weight: 67.6 kg

DRUGS (4)
  1. BYDUREON [Suspect]
     Active Substance: EXENATIDE
     Indication: TYPE 2 DIABETES MELLITUS
     Route: 058
     Dates: start: 201512, end: 201606
  2. LANTUS [Concomitant]
     Active Substance: INSULIN GLARGINE
     Indication: TYPE 2 DIABETES MELLITUS
     Route: 058
     Dates: start: 2000
  3. METFORMIN [Concomitant]
     Active Substance: METFORMIN HYDROCHLORIDE
     Indication: TYPE 2 DIABETES MELLITUS
     Route: 048
     Dates: start: 1998
  4. NOVOLOG [Concomitant]
     Active Substance: INSULIN ASPART
     Indication: TYPE 2 DIABETES MELLITUS
     Dosage: PER SLIDING SCALE PRN
     Route: 058
     Dates: start: 2000

REACTIONS (11)
  - Cholelithiasis [Unknown]
  - Memory impairment [Unknown]
  - Product quality issue [Unknown]
  - Dizziness [Unknown]
  - Post procedural infection [Unknown]
  - Depression [Unknown]
  - Weight decreased [Unknown]
  - Alopecia [Not Recovered/Not Resolved]
  - Intentional product misuse [Unknown]
  - Malnutrition [Unknown]
  - Pancreatitis [Unknown]

NARRATIVE: CASE EVENT DATE: 2016
